FAERS Safety Report 7167005-1 (Version None)
Quarter: 2010Q4

REPORT INFORMATION
  Report Type: 
  Country: None (occurrence: None)
  Receive Date: 20101216
  Receipt Date: 20101214
  Transmission Date: 20110411
  Serious: Yes (Hospitalization)
  Sender: FDA-Public Use
  Company Number: A0899714A

PATIENT
  Age: 39 Year
  Sex: Male

DRUGS (7)
  1. COREG [Suspect]
     Indication: HYPERTENSION
     Dosage: 12.5MG TWICE PER DAY
     Route: 048
     Dates: start: 20090201
  2. CONTRAST DYE [Suspect]
     Indication: PRODUCT USED FOR UNKNOWN INDICATION
     Route: 042
  3. ADRENALINE [Suspect]
     Indication: PRODUCT USED FOR UNKNOWN INDICATION
     Route: 042
  4. LASIX [Concomitant]
  5. LISINOPRIL [Concomitant]
  6. ZOCOR [Concomitant]
  7. INSULIN INJECTIONS [Concomitant]

REACTIONS (5)
  - BLOOD GLUCOSE DECREASED [None]
  - BLOOD PRESSURE FLUCTUATION [None]
  - DIALYSIS [None]
  - HEART RATE INCREASED [None]
  - RENAL FAILURE [None]
